FAERS Safety Report 20574114 (Version 1)
Quarter: 2022Q1

REPORT INFORMATION
  Report Type: Spontaneous
  Country: US (occurrence: None)
  Receive Date: 20220309
  Receipt Date: 20220309
  Transmission Date: 20220424
  Serious: No
  Sender: FDA-Public Use
  Company Number: None

PATIENT
  Age: 71 Year
  Sex: Female
  Weight: 67.05 kg

DRUGS (12)
  1. EVUSHELD [Suspect]
     Active Substance: CILGAVIMAB\TIXAGEVIMAB
     Indication: COVID-19 prophylaxis
  2. VITAMIN D [Concomitant]
     Active Substance: VITAMIN D NOS
  3. TACROLIMUS [Concomitant]
     Active Substance: TACROLIMUS
  4. BACTRIM [Concomitant]
     Active Substance: SULFAMETHOXAZOLE\TRIMETHOPRIM
  5. ALLOPURINOL [Concomitant]
     Active Substance: ALLOPURINOL
  6. BIOTIN [Concomitant]
     Active Substance: BIOTIN
  7. CALCITRIOL [Concomitant]
     Active Substance: CALCITRIOL
  8. LEVOTHYROXINE [Concomitant]
     Active Substance: LEVOTHYROXINE
  9. mag 64 [Concomitant]
  10. METOPROLOL [Concomitant]
     Active Substance: METOPROLOL
  11. NIFEDICAL XL [Concomitant]
     Active Substance: NIFEDIPINE
  12. OMEPRAZOLE [Concomitant]
     Active Substance: OMEPRAZOLE

REACTIONS (2)
  - Rash [None]
  - Acne [None]

NARRATIVE: CASE EVENT DATE: 20220228
